FAERS Safety Report 9296219 (Version 1)
Quarter: 2013Q2

REPORT INFORMATION
  Report Type: Spontaneous
  Country: LV (occurrence: LV)
  Receive Date: 20130517
  Receipt Date: 20130517
  Transmission Date: 20140414
  Serious: Yes (Death)
  Sender: FDA-Public Use
  Company Number: LV-VIIV HEALTHCARE LIMITED-B0891090A

PATIENT
  Age: 49 Year
  Sex: Male

DRUGS (5)
  1. COMBIVIR [Suspect]
     Indication: HIV INFECTION
     Dosage: 900MG PER DAY
     Route: 048
     Dates: start: 20010412, end: 20011030
  2. INDINAVIR [Concomitant]
     Indication: HIV INFECTION
     Route: 048
     Dates: start: 20010412, end: 20011030
  3. SULFAMETHOXAZOLE TRIMETHOPRIM [Concomitant]
     Indication: PNEUMONIA
     Route: 048
     Dates: start: 20010412, end: 20011030
  4. ISONIAZID [Concomitant]
     Indication: TUBERCULOSIS
     Route: 048
     Dates: start: 20010412, end: 20011030
  5. ETHAMBUTOL [Concomitant]
     Indication: TUBERCULOSIS
     Route: 048
     Dates: start: 20010412, end: 20011030

REACTIONS (5)
  - Condition aggravated [Fatal]
  - Vomiting [Unknown]
  - Face oedema [Unknown]
  - Hypotension [Unknown]
  - Nausea [Unknown]
